FAERS Safety Report 7816570 (Version 8)
Quarter: 2013Q2

REPORT INFORMATION
  Report Type: Spontaneous
  Country: US (occurrence: US)
  Receive Date: 20110217
  Receipt Date: 20130409
  Transmission Date: 20140414
  Serious: Yes (Death, Hospitalization, Other)
  Sender: FDA-Public Use
  Company Number: US-BAYER-2011-006267

PATIENT
  Age: 64 Year
  Sex: Male
  Weight: 84.35 kg

DRUGS (50)
  1. TRASYLOL [Suspect]
     Indication: VENTRICULAR ASSIST DEVICE INSERTION
     Dosage: UNK
     Route: 042
     Dates: start: 20060507, end: 20060507
  2. TRASYLOL [Suspect]
     Indication: VENTRICULAR ASSIST DEVICE INSERTION
     Dosage: 4 MILLION UNITS
     Route: 042
     Dates: start: 20070522, end: 20070522
  3. TRASYLOL [Suspect]
     Indication: HEART TRANSPLANT
     Dosage: 200ML CARDIOPUMLMONARY BYPASS PRIME
     Dates: start: 20070523, end: 20070523
  4. TRASYLOL [Suspect]
     Indication: IMPLANTABLE DEFIBRILLATOR INSERTION
     Dosage: UNK
  5. ACETYLSALICYLIC ACID [Concomitant]
     Dosage: 325 MG, QD
     Route: 048
  6. LOPRESSOR [Concomitant]
     Dosage: 100 MG, BID
     Route: 048
  7. VYTORIN [Concomitant]
     Dosage: 10/20 DAILY
     Route: 048
  8. DIGOXIN [Concomitant]
     Dosage: 0.25 MG, QD
     Route: 048
  9. LASIX [Concomitant]
     Dosage: 40 MG, QD
     Route: 048
  10. LASIX [Concomitant]
  11. NORVASC [Concomitant]
     Dosage: 5 MG, QD
     Route: 048
  12. COZAAR [Concomitant]
     Dosage: 50 MG, BID
     Route: 048
  13. PAXIL [Concomitant]
     Dosage: 30 MG, QD
     Route: 048
  14. HEPARIN [Concomitant]
     Dosage: UNK
  15. HEPARIN [Concomitant]
     Dosage: 4000 UNITS
     Dates: start: 20070522, end: 20070522
  16. HEPARIN [Concomitant]
     Dosage: 9000 UNITS
     Dates: start: 20070522, end: 20070522
  17. HEPARIN [Concomitant]
     Dosage: 10,000 UNITS
     Dates: start: 20070522, end: 20070522
  18. DOPAMINE [Concomitant]
     Dosage: UNK
     Route: 042
     Dates: start: 20070522
  19. COUMADIN [Concomitant]
     Dosage: 7.5 MG, HS
     Route: 048
  20. ATENOLOL [Concomitant]
     Dosage: 100 MG, QD
     Route: 048
  21. KDUR [Concomitant]
     Dosage: 20 MILLIEQUIVALENTS DAILY
     Route: 048
  22. PLAVIX [Concomitant]
     Dosage: 75 MG, QD
     Route: 048
  23. GLUCOPHAGE [Concomitant]
     Dosage: 1000 MG, BID
     Route: 048
  24. ATACAND [CANDESARTAN CILEXETIL] [Concomitant]
     Dosage: 16 MG, QD
     Route: 048
  25. MILRINONE [Concomitant]
     Dosage: UNK
     Route: 042
     Dates: start: 20070522
  26. DOBUTAMINE [Concomitant]
     Dosage: UNK
     Route: 042
     Dates: start: 20070522
  27. PITRESSIN [Concomitant]
     Dosage: UNK
     Route: 042
     Dates: start: 20070522
  28. LEVOPHED [Concomitant]
     Dosage: UNK
     Route: 042
     Dates: start: 20070522
  29. LANOXIN [Concomitant]
     Dosage: 0.25 MG, QD
     Route: 048
  30. TENORMIN [Concomitant]
     Dosage: 100 MG, QD
     Route: 048
  31. METHYLPREDNISOLON [Concomitant]
     Dosage: 1 GRAM
     Route: 042
     Dates: start: 20070522, end: 20070522
  32. BENADRYL [Concomitant]
     Dosage: UNK
     Route: 042
     Dates: start: 20070522, end: 20070522
  33. MANNITOL [Concomitant]
     Dosage: 12.5 GRAMS
     Route: 042
     Dates: start: 20070522, end: 20070522
  34. MANNITOL [Concomitant]
     Dosage: UNK
     Route: 042
     Dates: start: 20070522, end: 20070522
  35. PLATELETS, HUMAN BLOOD [Concomitant]
     Dosage: UNK
     Dates: start: 20070507
  36. PLASMA, FRESH FROZEN [Concomitant]
  37. CRYOPRECIPITATES [Concomitant]
     Dosage: UNK
     Dates: start: 20060507
  38. PACKED RED BLOOD CELLS [Concomitant]
     Dosage: UNK
     Dates: start: 20060507
  39. EPLERENONE [Concomitant]
     Dosage: 12.5 MG, QD
     Route: 048
  40. VALPROIC ACID [Concomitant]
     Dosage: 500 MG, BID
     Route: 048
  41. ZOSYN [Concomitant]
     Dosage: UNK
     Route: 042
     Dates: start: 200704
  42. LISINOPRIL [Concomitant]
     Dosage: 10 MG, QD
     Route: 048
  43. SYNTHROID [Concomitant]
     Dosage: 250 MCG, QD
     Route: 048
  44. LIPITOR [Concomitant]
     Dosage: 40 MG, QD
     Route: 048
  45. PREVACID [Concomitant]
     Dosage: 15 MG, QD
     Route: 048
  46. AMIODARONE [Concomitant]
     Dosage: 200 MG, QD
     Route: 048
  47. TOPROL XL [Concomitant]
     Dosage: 200 MG, QD
     Route: 048
  48. INSPRA [Concomitant]
     Dosage: 12.5 MG, QD
     Route: 048
  49. VERSED [Concomitant]
     Dosage: UNK
     Route: 042
     Dates: start: 20070522, end: 20070522
  50. VECURONIUM [Concomitant]
     Dosage: UNK
     Route: 042
     Dates: start: 20070522, end: 20070522

REACTIONS (14)
  - Death [Fatal]
  - Renal failure [Fatal]
  - Multi-organ failure [Unknown]
  - Myocardial infarction [Unknown]
  - Renal impairment [Unknown]
  - Renal injury [Unknown]
  - Pain [Unknown]
  - Emotional distress [Unknown]
  - Stress [Unknown]
  - Anxiety [Unknown]
  - Unevaluable event [Unknown]
  - Fear [Unknown]
  - Anxiety [Unknown]
  - Off label use [None]
